FAERS Safety Report 8193524-5 (Version None)
Quarter: 2012Q1

REPORT INFORMATION
  Report Type: 
  Country: None (occurrence: None)
  Receive Date: 20120308
  Receipt Date: 20120302
  Transmission Date: 20120608
  Serious: Yes (Death, Hospitalization)
  Sender: FDA-Public Use
  Company Number: BR-ROCHE-1002824

PATIENT
  Sex: Male
  Weight: 63 kg

DRUGS (5)
  1. PEGINTERFERON ALFA-2A [Suspect]
     Indication: HEPATITIS C
     Route: 058
     Dates: start: 20110427, end: 20111004
  2. COPEGUS [Suspect]
     Indication: HEPATITIS C
  3. FUROSEMIDA [Concomitant]
     Indication: ASCITES
     Dates: start: 20110914
  4. CAPTOPRIL [Concomitant]
     Indication: HYPERTENSION
     Dates: start: 20110405
  5. PROPRANOLOL [Concomitant]
     Indication: PROPHYLAXIS
     Dates: start: 20110302

REACTIONS (1)
  - UPPER GASTROINTESTINAL HAEMORRHAGE [None]
